FAERS Safety Report 4765904-9 (Version None)
Quarter: 2005Q3

REPORT INFORMATION
  Report Type: 
  Country: None (occurrence: None)
  Receive Date: 20050912
  Receipt Date: 20050905
  Transmission Date: 20060218
  Serious: Yes (Life-Threatening, Hospitalization)
  Sender: FDA-Public Use
  Company Number: PHRM2005FR02366

PATIENT
  Age: 60 Year
  Sex: Female
  Weight: 42 kg

DRUGS (6)
  1. GLEEVEC [Suspect]
     Indication: CHRONIC MYELOID LEUKAEMIA
     Dosage: 300 MG/DAY
     Route: 048
     Dates: start: 20030101
  2. GLEEVEC [Suspect]
     Dosage: 400 MG/DAY
     Route: 048
     Dates: start: 20010502, end: 20030101
  3. LEXOMIL [Concomitant]
     Dosage: UNK, UNK
     Route: 048
  4. DAFALGAN [Concomitant]
  5. PROVAMES [Concomitant]
     Indication: HORMONE REPLACEMENT THERAPY
     Route: 048
  6. UTROGESTAN [Concomitant]
     Indication: HORMONE REPLACEMENT THERAPY

REACTIONS (3)
  - COLON CANCER [None]
  - RECTAL HAEMORRHAGE [None]
  - SIGMOIDECTOMY [None]
